FAERS Safety Report 6178347-0 (Version None)
Quarter: 2009Q2

REPORT INFORMATION
  Report Type: 
  Country: None (occurrence: None)
  Receive Date: 20090504
  Receipt Date: 20090427
  Transmission Date: 20091009
  Serious: Yes (Death)
  Sender: FDA-Public Use
  Company Number: FR-SANOFI-SYNTHELABO-A02200901121

PATIENT
  Sex: Female

DRUGS (3)
  1. PROTHIADEN 25 [Concomitant]
     Indication: DRUG USE FOR UNKNOWN INDICATION
     Dosage: 1.5 MG UNK
     Route: 048
     Dates: start: 20030101
  2. ZOLPIDEM TARTRATE [Suspect]
     Indication: DRUG USE FOR UNKNOWN INDICATION
     Dosage: 5 MG TO 10 MG ONCE
     Route: 048
     Dates: start: 20030101
  3. LEXOMIL [Suspect]
     Dosage: 1.25 MG
     Route: 048
     Dates: start: 20030101

REACTIONS (1)
  - DEATH [None]
